FAERS Safety Report 7669768-5 (Version None)
Quarter: 2011Q3

REPORT INFORMATION
  Report Type: 
  Country: None (occurrence: None)
  Receive Date: 20110803
  Receipt Date: 20110721
  Transmission Date: 20111222
  Serious: Yes (Hospitalization)
  Sender: FDA-Public Use
  Company Number: AUR-APL-2010-01944

PATIENT
  Age: 71 Year
  Sex: Female
  Weight: 96.14 kg

DRUGS (19)
  1. LISINOPRIL [Suspect]
     Indication: PRODUCT USED FOR UNKNOWN INDICATION
     Dosage: 40 MG, 1 D; 20 MG, 1 D)
     Dates: start: 20071217
  2. LISINOPRIL [Suspect]
     Indication: PRODUCT USED FOR UNKNOWN INDICATION
     Dosage: 40 MG, 1 D; 20 MG, 1 D)
     Dates: start: 20100223
  3. FUROSEMIDE [Concomitant]
  4. CELECOXIB [Suspect]
     Indication: OSTEOARTHRITIS
     Dosage: 3 IN 1 D, ORAL
     Route: 048
     Dates: start: 20080702
  5. CENTRUM SILVER [Concomitant]
  6. GARLIC (ALLIUM SATIVUM) [Concomitant]
  7. ACETYLSALICYLIC ACID SRT [Concomitant]
  8. NEXIUM [Concomitant]
  9. VITAMIN E [Concomitant]
  10. VICODIN [Concomitant]
  11. ACETAMINOPHEN [Concomitant]
  12. LEKOVIT CA [Concomitant]
  13. BROMONIDE TARTRATE [Concomitant]
  14. POTASSIUM CHLORIDE [Concomitant]
  15. TRAVATAN [Concomitant]
  16. ACTONEL [Concomitant]
  17. ASCORBIC ACID [Concomitant]
  18. METOPROLOL TARTRATE [Suspect]
     Indication: HYPERTENSION
     Dosage: 100 MG, 1 D,
     Dates: start: 20050101
  19. CRESTOR [Concomitant]

REACTIONS (5)
  - FALL [None]
  - CONDITION AGGRAVATED [None]
  - OSTEOARTHRITIS [None]
  - SYNCOPE [None]
  - HEAD INJURY [None]
